FAERS Safety Report 8959774 (Version 3)
Quarter: 2013Q2

REPORT INFORMATION
  Report Type: Spontaneous
  Country: BR (occurrence: BR)
  Receive Date: 20121212
  Receipt Date: 20130612
  Transmission Date: 20140414
  Serious: No
  Sender: FDA-Public Use
  Company Number: BR-ROCHE-1167375

PATIENT
  Age: 24 Year
  Sex: Female
  Weight: 45 kg

DRUGS (2)
  1. ROACUTAN [Suspect]
     Indication: ACNE
     Route: 048
     Dates: start: 201112, end: 201206
  2. MERCILON [Concomitant]
     Indication: CONTRACEPTION
     Route: 065

REACTIONS (2)
  - Exposure during pregnancy [Unknown]
  - Migraine [Recovered/Resolved]
